FAERS Safety Report 5085706-6 (Version None)
Quarter: 2006Q3

REPORT INFORMATION
  Report Type: 
  Country: None (occurrence: None)
  Receive Date: 20060822
  Receipt Date: 20060330
  Transmission Date: 20061208
  Serious: Yes (Hospitalization)
  Sender: FDA-Public Use
  Company Number: FR-JNJFOC-20060804252

PATIENT
  Age: 73 Year
  Sex: Male

DRUGS (4)
  1. TOPALGIC [Suspect]
     Indication: CAUDA EQUINA SYNDROME
     Route: 048
  2. DI-ANTALVIC [Suspect]
     Indication: CAUDA EQUINA SYNDROME
     Route: 048
  3. DEROXAT [Suspect]
     Indication: NEURALGIA
     Route: 065
  4. NEURONTIN [Concomitant]
     Route: 065

REACTIONS (5)
  - AMNESIA [None]
  - APHASIA [None]
  - CONFUSIONAL STATE [None]
  - HALLUCINATION [None]
  - URINARY INCONTINENCE [None]
